FAERS Safety Report 5140466-5 (Version None)
Quarter: 2006Q4

REPORT INFORMATION
  Report Type: 
  Country: None (occurrence: None)
  Receive Date: 20061025
  Receipt Date: 20061012
  Transmission Date: 20070319
  Serious: Yes (Hospitalization, Other)
  Sender: FDA-Public Use
  Company Number: A-CH2006-13238

PATIENT
  Sex: 0

DRUGS (1)
  1. TRACLEER [Suspect]
     Indication: CONNECTIVE TISSUE DISORDER
     Dosage: 62.5 MG, BID, ORAL
     Route: 048
     Dates: start: 20040615, end: 20060217

REACTIONS (1)
  - LUNG TRANSPLANT [None]
